FAERS Safety Report 6621110-4 (Version None)
Quarter: 2010Q1

REPORT INFORMATION
  Report Type: 
  Country: None (occurrence: None)
  Receive Date: 20100309
  Receipt Date: 20100225
  Transmission Date: 20100710
  Serious: Yes (Other)
  Sender: FDA-Public Use
  Company Number: US-BAYER-200942094NA

PATIENT
  Age: 64 Year
  Sex: Male
  Weight: 84 kg

DRUGS (4)
  1. AVELOX [Suspect]
     Indication: DIVERTICULITIS
     Dosage: UNIT DOSE: 400 MG
     Dates: start: 20090909
  2. ATENOLOL [Concomitant]
     Indication: HYPERTENSION
  3. OMEPRAZOLE [Concomitant]
  4. NIASPAN [Concomitant]

REACTIONS (1)
  - TENDON DISORDER [None]
